FAERS Safety Report 15277643 (Version 2)
Quarter: 2018Q3

REPORT INFORMATION
  Report Type: Spontaneous
  Country: CA (occurrence: CA)
  Receive Date: 20180814
  Receipt Date: 20180920
  Transmission Date: 20181010
  Serious: Yes (Hospitalization, Other)
  Sender: FDA-Public Use
  Company Number: CA-PFIZER INC-2018158746

PATIENT
  Age: 17 Year
  Sex: Female

DRUGS (3)
  1. ZOLOFT [Suspect]
     Active Substance: SERTRALINE HYDROCHLORIDE
     Dosage: 50 MG, UNK
     Dates: start: 201802, end: 201806
  2. ZOLOFT [Suspect]
     Active Substance: SERTRALINE HYDROCHLORIDE
     Dosage: 100 MG, UNK
     Dates: start: 2013, end: 201802
  3. TOPAMAX [Suspect]
     Active Substance: TOPIRAMATE
     Indication: SEIZURE
     Dosage: 12 MG, UNK
     Dates: start: 2014

REACTIONS (27)
  - Abnormal behaviour [Unknown]
  - Personality disorder [Unknown]
  - Asthenia [Unknown]
  - Skin disorder [Unknown]
  - Abdominal pain upper [Unknown]
  - Decreased appetite [Recovered/Resolved]
  - Headache [Unknown]
  - Psychotic disorder [Unknown]
  - Irritability [Unknown]
  - Depression [Unknown]
  - Vomiting [Unknown]
  - Memory impairment [Unknown]
  - Suicidal ideation [Not Recovered/Not Resolved]
  - Eye swelling [Unknown]
  - Anger [Unknown]
  - Aggression [Unknown]
  - Confusional state [Unknown]
  - Euphoric mood [Unknown]
  - Somnolence [Unknown]
  - Haematemesis [Unknown]
  - Intentional self-injury [Unknown]
  - Drug ineffective [Unknown]
  - Product use issue [Unknown]
  - Swelling face [Unknown]
  - Personality change [Unknown]
  - Anxiety [Unknown]
  - Dizziness [Unknown]
